FAERS Safety Report 19854924 (Version 1)
Quarter: 2021Q3

REPORT INFORMATION
  Report Type: Spontaneous
  Country: US (occurrence: US)
  Receive Date: 20210918
  Receipt Date: 20210918
  Transmission Date: 20211014
  Serious: No
  Sender: FDA-Public Use
  Company Number: None

PATIENT
  Age: 77 Year
  Sex: Female
  Weight: 70.2 kg

DRUGS (6)
  1. AZELAIC ACID GEL, 15% [Suspect]
     Active Substance: AZELAIC ACID
     Indication: ROSACEA
     Dosage: ?          QUANTITY:50 THIN LAYER;?
     Route: 061
     Dates: start: 20210825, end: 20210901
  2. LOSARTAN. [Concomitant]
     Active Substance: LOSARTAN
  3. ARMOUR THYROID [Concomitant]
     Active Substance: THYROID, PORCINE
  4. AMLODIPINE [Concomitant]
     Active Substance: AMLODIPINE BESYLATE
  5. VITAMIN D3 [Concomitant]
     Active Substance: CHOLECALCIFEROL
  6. AREDS2 [Concomitant]

REACTIONS (3)
  - Rash [None]
  - Urticaria [None]
  - Rash pruritic [None]
